FAERS Safety Report 5972559-4 (Version None)
Quarter: 2008Q4

REPORT INFORMATION
  Report Type: 
  Country: None (occurrence: None)
  Receive Date: 20081201
  Receipt Date: 20081121
  Transmission Date: 20090506
  Serious: Yes (Disabling)
  Sender: FDA-Public Use
  Company Number: B0547942A

PATIENT
  Age: 67 Year
  Sex: Female

DRUGS (3)
  1. REQUIP DEPOT [Suspect]
     Indication: PARKINSONISM
     Dosage: 12MG PER DAY
     Route: 048
     Dates: start: 20080917, end: 20081029
  2. MADOPAR [Concomitant]
     Indication: PARKINSONISM
     Dosage: 2TAB PER DAY
     Route: 048
     Dates: start: 20040929
  3. AMITRIPTYLINE HCL [Concomitant]
     Indication: SLEEP DISORDER
     Dosage: 25MG PER DAY
     Route: 048
     Dates: start: 20050921

REACTIONS (2)
  - DEPRESSION [None]
  - MALAISE [None]
